FAERS Safety Report 9528364 (Version 1)
Quarter: 2013Q3

REPORT INFORMATION
  Report Type: Spontaneous
  Country: IN (occurrence: None)
  Receive Date: 20130913
  Receipt Date: 20130913
  Transmission Date: 20140515
  Serious: Yes (Death, Hospitalization)
  Sender: FDA-Public Use
  Company Number: VAL_02718_2013

PATIENT
  Age: 41 Year
  Sex: Female

DRUGS (3)
  1. METOPROLOL (METOPROLOL-METOPROLOL TARTRATE) [Suspect]
     Indication: ARRHYTHMIA
  2. PREDNISOLONE (PREDNISOLONE) [Suspect]
     Indication: PRODUCT USED FOR UNKNOWN INDICATION
  3. AMIODARONE (AMIODARONE) [Suspect]
     Indication: ARRHYTHMIA
     Dosage: (300 MG, DAILY {REGIMEN #1} ORAL)
     Route: 048

REACTIONS (3)
  - Ventricular tachycardia [None]
  - Sarcoidosis [None]
  - Bundle branch block right [None]
